FAERS Safety Report 8353104 (Version 3)
Quarter: 2013Q2

REPORT INFORMATION
  Report Type: Spontaneous
  Country: US (occurrence: US)
  Receive Date: 20120125
  Receipt Date: 20130402
  Transmission Date: 20140414
  Serious: Yes (Hospitalization)
  Sender: FDA-Public Use
  Company Number: US-BAYER-2012-006359

PATIENT
  Age: 41 Year
  Sex: Female
  Weight: 131.52 kg

DRUGS (16)
  1. YAZ [Suspect]
     Indication: PREMENSTRUAL SYNDROME
     Dosage: UNK
     Dates: start: 200601, end: 200707
  2. YAZ [Suspect]
     Indication: PREMENSTRUAL DYSPHORIC DISORDER
  3. YASMIN [Suspect]
     Indication: PREMENSTRUAL SYNDROME
     Dosage: UNK
     Dates: start: 20060123
  4. YASMIN [Suspect]
     Indication: PREMENSTRUAL DYSPHORIC DISORDER
     Dosage: UNK
     Dates: start: 200708, end: 20071105
  5. NOVOLOG [Concomitant]
  6. LORTAB [Concomitant]
  7. OMEPRAZOLE [Concomitant]
  8. LEVEMIR [Concomitant]
     Dosage: 30 U, QD
     Route: 058
  9. LOVASTATIN [Concomitant]
     Dosage: 10 MG, QD
  10. PREVACID [Concomitant]
     Dosage: 30 MG, QD
  11. PROZAC [Concomitant]
     Dosage: 40 MG, QD
  12. LEVOXYL [Concomitant]
     Dosage: 0.175 MG, QD
  13. HUMALOG [Concomitant]
     Dosage: 100 U/ML, UNK
  14. GLIPIZIDE [Concomitant]
     Dosage: 10 MG, UNK
  15. LORAZEPAM [Concomitant]
     Dosage: 1 MG, UNK
  16. HYDROCODONE W/APAP [Concomitant]
     Dosage: 10/500

REACTIONS (3)
  - Pulmonary embolism [None]
  - Dyspnoea [None]
  - Emotional distress [None]
